FAERS Safety Report 15308798 (Version 1)
Quarter: 2018Q3

REPORT INFORMATION
  Report Type: Spontaneous
  Country: MX (occurrence: MX)
  Receive Date: 20180822
  Receipt Date: 20180822
  Transmission Date: 20181010
  Serious: Yes (Other)
  Sender: FDA-Public Use
  Company Number: MX-009507513-1808MEX008096

PATIENT
  Sex: Female

DRUGS (1)
  1. IMPLANON [Suspect]
     Active Substance: ETONOGESTREL
     Dosage: 1 IMPLANT, UNK
     Route: 067

REACTIONS (4)
  - Complication of drug implant insertion [Unknown]
  - Incorrect route of drug administration [Unknown]
  - Device deployment issue [Unknown]
  - Unintentional use for unapproved indication [Unknown]
